FAERS Safety Report 15045012 (Version 1)
Quarter: 2018Q2

REPORT INFORMATION
  Report Type: Spontaneous
  Country: FR (occurrence: FR)
  Receive Date: 20180621
  Receipt Date: 20180621
  Transmission Date: 20180711
  Serious: Yes (Other)
  Sender: FDA-Public Use
  Company Number: FR-TEVA-2018-FR-910898

PATIENT
  Age: 32 Year
  Sex: Male
  Weight: 57 kg

DRUGS (5)
  1. NEORAL [Suspect]
     Active Substance: CYCLOSPORINE
     Indication: ACUTE MYELOID LEUKAEMIA
     Dosage: 200 MILLIGRAM DAILY;
     Route: 048
     Dates: start: 201802
  2. BACTRIM [Suspect]
     Active Substance: SULFAMETHOXAZOLE\TRIMETHOPRIM
     Indication: ACUTE MYELOID LEUKAEMIA
     Route: 048
     Dates: start: 201802
  3. FLUCONAZOLE. [Suspect]
     Active Substance: FLUCONAZOLE
     Indication: ACUTE MYELOID LEUKAEMIA
     Route: 048
     Dates: start: 201802
  4. ROVALCYTE [Suspect]
     Active Substance: VALGANCICLOVIR HYDROCHLORIDE
     Indication: CYTOMEGALOVIRUS TEST
     Route: 048
     Dates: start: 201802
  5. TAVANIC [Suspect]
     Active Substance: LEVOFLOXACIN
     Indication: ACUTE MYELOID LEUKAEMIA
     Route: 048
     Dates: start: 201802

REACTIONS (2)
  - Tremor [Not Recovered/Not Resolved]
  - Dyspnoea exertional [Not Recovered/Not Resolved]

NARRATIVE: CASE EVENT DATE: 201803
